FAERS Safety Report 20146808 (Version 13)
Quarter: 2022Q2

REPORT INFORMATION
  Report Type: Spontaneous
  Country: CZ (occurrence: CZ)
  Receive Date: 20211203
  Receipt Date: 20220620
  Transmission Date: 20220720
  Serious: Yes (Hospitalization, Other)
  Sender: FDA-Public Use
  Company Number: CZ-MYLANLABS-2021M1086534

PATIENT
  Age: 59 Year
  Sex: Female
  Weight: 64.9 kg

DRUGS (40)
  1. BREXPIPRAZOLE [Suspect]
     Active Substance: BREXPIPRAZOLE
     Indication: Antipsychotic therapy
     Dosage: INCREASED TO 4 MG DAILY
     Route: 065
  2. BREXPIPRAZOLE [Suspect]
     Active Substance: BREXPIPRAZOLE
     Indication: Schizophrenia
     Dosage: INCREASED TO 111 MG, OVERDOSE: 111MG
     Route: 065
  3. BREXPIPRAZOLE [Suspect]
     Active Substance: BREXPIPRAZOLE
     Indication: Schizophrenia
     Dosage: 1 MG, QD
     Route: 065
  4. BREXPIPRAZOLE [Suspect]
     Active Substance: BREXPIPRAZOLE
     Dosage: 111 MG, QD
     Route: 065
  5. ARIPIPRAZOLE [Suspect]
     Active Substance: ARIPIPRAZOLE
     Indication: Antipsychotic therapy
     Dosage: 15 MG
     Route: 065
  6. ARIPIPRAZOLE [Suspect]
     Active Substance: ARIPIPRAZOLE
     Indication: Schizophrenia
     Dosage: UNK
     Route: 065
  7. ARIPIPRAZOLE [Suspect]
     Active Substance: ARIPIPRAZOLE
     Indication: Schizophrenia
  8. PALIPERIDONE [Suspect]
     Active Substance: PALIPERIDONE
     Indication: Antipsychotic therapy
     Dosage: 100 MG, QM
     Route: 030
     Dates: start: 200907
  9. PALIPERIDONE [Suspect]
     Active Substance: PALIPERIDONE
     Indication: Schizophrenia
     Dosage: 50 MG, BIW
     Route: 030
  10. PALIPERIDONE [Suspect]
     Active Substance: PALIPERIDONE
     Indication: Schizophrenia
     Dosage: UNK
     Route: 030
  11. PALIPERIDONE [Suspect]
     Active Substance: PALIPERIDONE
     Dosage: 100 MG, WEEKLY (1/W)
     Route: 065
  12. OLANZAPINE [Suspect]
     Active Substance: OLANZAPINE
     Indication: Antipsychotic therapy
     Dosage: 10 MG
     Route: 065
  13. OLANZAPINE [Suspect]
     Active Substance: OLANZAPINE
     Indication: Schizophrenia
     Dosage: UNK
     Route: 065
  14. OLANZAPINE [Suspect]
     Active Substance: OLANZAPINE
     Indication: Schizophrenia
  15. SERTINDOLE [Suspect]
     Active Substance: SERTINDOLE
     Indication: Antipsychotic therapy
     Dosage: UNK
     Route: 065
  16. SERTINDOLE [Suspect]
     Active Substance: SERTINDOLE
     Indication: Schizophrenia
  17. SERTINDOLE [Suspect]
     Active Substance: SERTINDOLE
     Indication: Schizophrenia
  18. HALOPERIDOL [Suspect]
     Active Substance: HALOPERIDOL
     Indication: Antipsychotic therapy
     Dosage: UNK
     Route: 065
  19. HALOPERIDOL [Suspect]
     Active Substance: HALOPERIDOL
     Indication: Schizophrenia
     Dosage: 4 MG
     Route: 065
  20. HALOPERIDOL [Suspect]
     Active Substance: HALOPERIDOL
     Indication: Schizophrenia
  21. HALOPERIDOL [Suspect]
     Active Substance: HALOPERIDOL
     Indication: Schizophrenia
  22. CLOZAPINE [Suspect]
     Active Substance: CLOZAPINE
     Indication: Antipsychotic therapy
     Dosage: CLOZAPINE WAS INCREASED TO 500 MG, DISCHARGED HOME
     Route: 065
  23. CLOZAPINE [Suspect]
     Active Substance: CLOZAPINE
     Indication: Schizophrenia
     Dosage: 500 MG, UNKNOWN
     Route: 065
  24. CLOZAPINE [Suspect]
     Active Substance: CLOZAPINE
     Indication: Schizophrenia
  25. CLOZAPINE [Suspect]
     Active Substance: CLOZAPINE
     Indication: Schizophrenia
  26. RISPERIDONE [Suspect]
     Active Substance: RISPERIDONE
     Indication: Schizophrenia
     Dosage: 15 MG, BIW
     Route: 030
  27. RISPERIDONE [Suspect]
     Active Substance: RISPERIDONE
     Indication: Antipsychotic therapy
     Dosage: 50 MG, BIW
     Route: 030
  28. RISPERIDONE [Suspect]
     Active Substance: RISPERIDONE
     Indication: Schizophrenia
     Dosage: 4 MG, UNKNOWN
     Route: 030
  29. RISPERIDONE [Suspect]
     Active Substance: RISPERIDONE
     Dosage: UNK
     Route: 030
  30. RISPERIDONE [Suspect]
     Active Substance: RISPERIDONE
     Dosage: 4 MG, WEEKLY (1/W)
     Route: 065
  31. RISPERIDONE [Suspect]
     Active Substance: RISPERIDONE
     Dosage: 30 MG, WEEKLY (1/W)
     Route: 065
  32. RISPERIDONE [Suspect]
     Active Substance: RISPERIDONE
     Dosage: 100 MG, WEEKLY (1/W)
     Route: 065
  33. LEVOMEPROMAZINE [Suspect]
     Active Substance: LEVOMEPROMAZINE
     Indication: Antipsychotic therapy
     Dosage: UNK
     Route: 065
  34. LEVOMEPROMAZINE [Suspect]
     Active Substance: LEVOMEPROMAZINE
     Indication: Schizophrenia
  35. LEVOMEPROMAZINE [Suspect]
     Active Substance: LEVOMEPROMAZINE
     Indication: Schizophrenia
  36. QUETIAPINE [Suspect]
     Active Substance: QUETIAPINE
     Indication: Antipsychotic therapy
     Dosage: 400 MG, UNKNOWN
     Route: 065
  37. QUETIAPINE [Suspect]
     Active Substance: QUETIAPINE
     Indication: Schizophrenia
     Dosage: UNK
     Route: 065
  38. QUETIAPINE [Suspect]
     Active Substance: QUETIAPINE
     Indication: Schizophrenia
  39. FLUPENTIXOL DECANOATE [Suspect]
     Active Substance: FLUPENTIXOL DECANOATE
     Indication: Antipsychotic therapy
     Dosage: UNK
     Route: 030
  40. LURASIDONE [Concomitant]
     Active Substance: LURASIDONE
     Indication: Product used for unknown indication
     Dosage: MAXIMUM DOSE OF 148 MG PER DAY.
     Route: 065

REACTIONS (17)
  - Depression [Unknown]
  - Sedation complication [Recovered/Resolved]
  - Schizophrenia [Recovering/Resolving]
  - Lethargy [Unknown]
  - Hypotension [Recovered/Resolved]
  - Fatigue [Unknown]
  - Insomnia [Unknown]
  - Hyperprolactinaemia [Recovering/Resolving]
  - Anxiety [Unknown]
  - Weight increased [Recovered/Resolved]
  - Tremor [Recovered/Resolved]
  - Tremor [Unknown]
  - Therapy non-responder [Unknown]
  - Overdose [Unknown]
  - Therapeutic product effect incomplete [Unknown]
  - Product use in unapproved indication [Unknown]
  - Treatment noncompliance [Unknown]

NARRATIVE: CASE EVENT DATE: 20090701
